FAERS Safety Report 15250946 (Version 4)
Quarter: 2018Q3

REPORT INFORMATION
  Report Type: Spontaneous
  Country: US (occurrence: US)
  Receive Date: 20180807
  Receipt Date: 20180906
  Transmission Date: 20181010
  Serious: Yes (Other)
  Sender: FDA-Public Use
  Company Number: US-BAUSCH-BL-2018-020679

PATIENT
  Sex: Female
  Weight: 74.91 kg

DRUGS (1)
  1. UCERIS [Suspect]
     Active Substance: BUDESONIDE
     Indication: COLITIS ULCERATIVE
     Dosage: 2 MG/METERED DOSE
     Route: 054
     Dates: start: 20180629, end: 20180704

REACTIONS (4)
  - Contraindicated drug prescribed [Unknown]
  - Scar [Recovering/Resolving]
  - Pyoderma gangrenosum [Recovering/Resolving]
  - Cellulitis staphylococcal [Recovering/Resolving]

NARRATIVE: CASE EVENT DATE: 2018
